FAERS Safety Report 5710551-5 (Version None)
Quarter: 2008Q2

REPORT INFORMATION
  Report Type: 
  Country: None (occurrence: None)
  Receive Date: 20080415
  Receipt Date: 20080404
  Transmission Date: 20081010
  Serious: Yes (Hospitalization)
  Sender: FDA-Public Use
  Company Number: 231818J08USA

PATIENT
  Age: 40 Year
  Sex: Female
  Weight: 70.3075 kg

DRUGS (3)
  1. REBIF [Suspect]
     Indication: MULTIPLE SCLEROSIS
     Dosage: 44 MCG, 3 IN 1 WEEKS, SUBCUTANEOUS
     Route: 058
     Dates: start: 20071126
  2. BACLOFEN (BACLOFEN0 [Concomitant]
  3. KLONOPIN [Concomitant]

REACTIONS (3)
  - CONTUSION [None]
  - FALL [None]
  - LOWER LIMB FRACTURE [None]
